FAERS Safety Report 18817481 (Version 4)
Quarter: 2021Q1

REPORT INFORMATION
  Report Type: Other
  Country: KR (occurrence: KR)
  Receive Date: 20210201
  Receipt Date: 20210315
  Transmission Date: 20210419
  Serious: Yes (Hospitalization)
  Sender: FDA-Public Use
  Company Number: KR-ROCHE-2655469

PATIENT
  Age: 60 Year
  Sex: Female

DRUGS (28)
  1. SELENASE [Concomitant]
     Route: 048
     Dates: start: 20200724
  2. PERTUZUMAB. [Suspect]
     Active Substance: PERTUZUMAB
     Route: 042
     Dates: start: 20200711
  3. NASERON [Concomitant]
     Active Substance: RAMOSETRON HYDROCHLORIDE
     Indication: VOMITING
  4. LONQUEX [Concomitant]
     Active Substance: LIPEGFILGRASTIM
     Indication: NEUTROPENIA
     Route: 058
     Dates: start: 20200531, end: 20200915
  5. GASTER (SOUTH KOREA) [Concomitant]
     Route: 042
     Dates: start: 20200530, end: 20200914
  6. CAL D3 [Concomitant]
     Route: 048
     Dates: start: 20200724
  7. PERTUZUMAB. [Suspect]
     Active Substance: PERTUZUMAB
     Route: 042
     Dates: start: 20200530
  8. TRASTUZUMAB. [Suspect]
     Active Substance: TRASTUZUMAB
     Route: 042
     Dates: start: 20200620
  9. SMECTA [Concomitant]
     Active Substance: MONTMORILLONITE
     Indication: DIARRHOEA
     Route: 048
     Dates: start: 20200621, end: 20200625
  10. PERTUZUMAB. [Suspect]
     Active Substance: PERTUZUMAB
     Route: 042
     Dates: start: 20200824
  11. PERTUZUMAB. [Suspect]
     Active Substance: PERTUZUMAB
     Route: 042
     Dates: start: 20200914
  12. PERTUZUMAB. [Suspect]
     Active Substance: PERTUZUMAB
     Dosage: SHE RECEIVED THE MOST RECENT DOSE ON 11/JUL/2020, 03/AUG/2020, 24/AUG/2020, 14/SEP/2020, 05/DEC/2020
     Route: 042
     Dates: start: 20200620
  13. DOCETAXEL. [Suspect]
     Active Substance: DOCETAXEL
     Indication: BREAST CANCER
     Route: 042
     Dates: start: 20200530
  14. NASEA OD [Concomitant]
     Active Substance: RAMOSETRON HYDROCHLORIDE
     Indication: VOMITING
  15. PENIRAMIN [Concomitant]
     Indication: ALLERGY PROPHYLAXIS
     Route: 042
     Dates: start: 20200530, end: 20200914
  16. NASERON [Concomitant]
     Active Substance: RAMOSETRON HYDROCHLORIDE
     Indication: NAUSEA
     Route: 042
     Dates: start: 20200530, end: 20200914
  17. PERTUZUMAB. [Suspect]
     Active Substance: PERTUZUMAB
     Indication: BREAST CANCER
     Route: 042
     Dates: start: 20200530
  18. PERTUZUMAB. [Suspect]
     Active Substance: PERTUZUMAB
     Route: 042
     Dates: start: 20200803
  19. PERTUZUMAB. [Suspect]
     Active Substance: PERTUZUMAB
     Route: 042
     Dates: start: 20201228
  20. PERTUZUMAB. [Suspect]
     Active Substance: PERTUZUMAB
     Route: 042
     Dates: start: 20210118
  21. TRASTUZUMAB. [Suspect]
     Active Substance: TRASTUZUMAB
     Indication: BREAST CANCER
     Route: 042
     Dates: start: 20200530, end: 20200530
  22. DEXAMETHASONE. [Concomitant]
     Active Substance: DEXAMETHASONE
     Indication: ALLERGY PROPHYLAXIS
     Route: 048
     Dates: start: 20200530, end: 20200916
  23. PERTUZUMAB. [Suspect]
     Active Substance: PERTUZUMAB
     Route: 042
     Dates: start: 20200620
  24. PERTUZUMAB. [Suspect]
     Active Substance: PERTUZUMAB
     Route: 042
     Dates: start: 20201205
  25. CARBOPLATIN. [Suspect]
     Active Substance: CARBOPLATIN
     Indication: BREAST CANCER
     Route: 042
     Dates: start: 20200620
  26. GABAPENTIN. [Concomitant]
     Active Substance: GABAPENTIN
     Indication: NEURALGIA
     Route: 048
     Dates: start: 20200530, end: 20200801
  27. NASEA OD [Concomitant]
     Active Substance: RAMOSETRON HYDROCHLORIDE
     Indication: NAUSEA
     Route: 048
     Dates: start: 20200530, end: 20200915
  28. GODEX (SOUTH KOREA) [Concomitant]
     Route: 048
     Dates: start: 20200803, end: 20200825

REACTIONS (8)
  - Stomatitis [Recovered/Resolved]
  - Liver function test increased [Recovered/Resolved]
  - Decreased appetite [Recovered/Resolved]
  - Dry eye [Recovered/Resolved]
  - Alanine aminotransferase increased [Recovered/Resolved]
  - Aspartate aminotransferase increased [Recovered/Resolved]
  - Pneumonia [Recovered/Resolved]
  - Abdominal pain [Recovered/Resolved]

NARRATIVE: CASE EVENT DATE: 20200723
